FAERS Safety Report 7040918-7 (Version None)
Quarter: 2010Q4

REPORT INFORMATION
  Report Type: 
  Country: None (occurrence: None)
  Receive Date: 20101007
  Receipt Date: 20100924
  Transmission Date: 20110411
  Serious: Yes (Other)
  Sender: FDA-Public Use
  Company Number: 2010SP051482

PATIENT
  Age: 57 Year
  Sex: Female

DRUGS (12)
  1. DULERA TABLET [Suspect]
     Indication: ASTHMA
     Dosage: 2 DF;BID;INH
     Route: 055
     Dates: start: 20100908
  2. ATENOLOL [Concomitant]
  3. MIRAPEX [Concomitant]
  4. TRILEPTAL [Concomitant]
  5. METFORMIN [Concomitant]
  6. JANUVIA [Concomitant]
  7. PLAVIX [Concomitant]
  8. NEXIUM [Concomitant]
  9. TREMADOL [Concomitant]
  10. LOVAZA [Concomitant]
  11. IRON SUPPLEMENT [Concomitant]
  12. VITAMIN D [Concomitant]

REACTIONS (1)
  - HYPERHIDROSIS [None]
